FAERS Safety Report 14506067 (Version 2)
Quarter: 2018Q1

REPORT INFORMATION
  Report Type: Spontaneous
  Country: US (occurrence: US)
  Receive Date: 20180208
  Receipt Date: 20180224
  Transmission Date: 20180509
  Serious: Yes (Other)
  Sender: FDA-Public Use
  Company Number: US-TEVA-2018-US-855766

PATIENT
  Age: 28 Year
  Sex: Female
  Weight: 68 kg

DRUGS (1)
  1. NORGESTREL/ETHINYL ESTRADIOL [Suspect]
     Active Substance: ETHINYL ESTRADIOL\NORGESTREL
     Indication: ORAL CONTRACEPTION
     Dosage: 1 DF=NORGESTREL 0.3MG/ETHINYLESTRADIOL 30 MICROG
     Route: 048

REACTIONS (2)
  - Amenorrhoea [Recovered/Resolved]
  - Endometrial disorder [Recovered/Resolved]
